FAERS Safety Report 19523609 (Version 1)
Quarter: 2021Q3

REPORT INFORMATION
  Report Type: Spontaneous
  Country: DE (occurrence: DE)
  Receive Date: 20210712
  Receipt Date: 20210712
  Transmission Date: 20211014
  Serious: Yes (Hospitalization, Other)
  Sender: FDA-Public Use
  Company Number: DE-BAUSCH-BL-2021-022649

PATIENT
  Age: 49 Year
  Sex: Male
  Weight: 85 kg

DRUGS (41)
  1. ACYCLOVIR. [Suspect]
     Active Substance: ACYCLOVIR
     Indication: VARICELLA ZOSTER VIRUS INFECTION
     Route: 065
     Dates: start: 201509
  2. CYCLOPHOSPHAMID [Suspect]
     Active Substance: CYCLOPHOSPHAMIDE
     Dosage: SUBSEQUENT DOSE WERE ADMINISTERED ON 07/APR/2015.
     Route: 042
     Dates: start: 201502
  3. CYCLOPHOSPHAMID [Suspect]
     Active Substance: CYCLOPHOSPHAMIDE
     Dosage: SUBSEQUENT DOSE ADMINISTERED ON 17/DEC/2014
     Route: 042
     Dates: start: 20141216
  4. VIMPAT [Suspect]
     Active Substance: LACOSAMIDE
     Indication: EPILEPSY
     Route: 065
     Dates: start: 201706, end: 20200221
  5. DEKRISTOL [Concomitant]
     Active Substance: CHOLECALCIFEROL
     Route: 065
  6. PRIVIGEN [Suspect]
     Active Substance: HUMAN IMMUNOGLOBULIN G
     Indication: CHRONIC LYMPHOCYTIC LEUKAEMIA
     Route: 065
     Dates: start: 20160323
  7. FLUDARABINE [Suspect]
     Active Substance: FLUDARABINE PHOSPHATE
     Route: 042
     Dates: start: 20150310
  8. FLUDARABINE [Suspect]
     Active Substance: FLUDARABINE PHOSPHATE
     Route: 042
     Dates: start: 20150113
  9. ALLOPURINOL. [Concomitant]
     Active Substance: ALLOPURINOL
     Indication: PRODUCT USED FOR UNKNOWN INDICATION
     Route: 065
  10. AMPHOTERICIN [Concomitant]
     Active Substance: AMPHOTERICIN B
     Indication: PRODUCT USED FOR UNKNOWN INDICATION
     Route: 065
  11. FLUDARABINE [Suspect]
     Active Substance: FLUDARABINE PHOSPHATE
     Route: 042
     Dates: start: 20150115
  12. FLUDARABINE [Suspect]
     Active Substance: FLUDARABINE PHOSPHATE
     Route: 042
     Dates: start: 20150312
  13. GAZYVARO [Suspect]
     Active Substance: OBINUTUZUMAB
     Route: 042
     Dates: start: 20141216
  14. FLUDARABINE [Suspect]
     Active Substance: FLUDARABINE PHOSPHATE
     Dosage: 25 MG/M2
     Route: 042
     Dates: start: 201502
  15. FLUDARABINE [Suspect]
     Active Substance: FLUDARABINE PHOSPHATE
     Dosage: 25 MG/M2
     Route: 042
     Dates: start: 20150407
  16. JONOSTERIL [CALCIUM ACETATE;MAGNESIUM ACETATE TETRAHYDRATE;POTASSIUM A [Concomitant]
     Indication: PRODUCT USED FOR UNKNOWN INDICATION
     Route: 065
  17. GAZYVARO [Suspect]
     Active Substance: OBINUTUZUMAB
     Route: 042
     Dates: start: 20150407
  18. FLUDARABINE [Suspect]
     Active Substance: FLUDARABINE PHOSPHATE
     Dosage: 25 MG/M2
     Route: 042
     Dates: start: 20141216
  19. FLUDARABINE [Suspect]
     Active Substance: FLUDARABINE PHOSPHATE
     Dosage: 25 MG/M2
     Route: 042
     Dates: start: 20150313
  20. CYCLOPHOSPHAMID [Suspect]
     Active Substance: CYCLOPHOSPHAMIDE
     Indication: CHRONIC LYMPHOCYTIC LEUKAEMIA
     Route: 042
     Dates: start: 20141118
  21. CYCLOPHOSPHAMID [Suspect]
     Active Substance: CYCLOPHOSPHAMIDE
     Route: 065
     Dates: start: 20141118, end: 20150407
  22. CYCLOPHOSPHAMID [Suspect]
     Active Substance: CYCLOPHOSPHAMIDE
     Dosage: 250 MG/M2 SUBSEQUENT DOSE ADMINISTERED ON 14/JAN/2015, 15/JAN/2015
     Route: 042
     Dates: start: 20150113
  23. URSOFALK [Suspect]
     Active Substance: URSODIOL
     Indication: DRUG-INDUCED LIVER INJURY
     Route: 065
     Dates: start: 201602, end: 201603
  24. GAZYVARO [Suspect]
     Active Substance: OBINUTUZUMAB
     Dosage: INFUSION, SOLUTION
     Route: 042
     Dates: start: 20141118, end: 20150407
  25. GAZYVARO [Suspect]
     Active Substance: OBINUTUZUMAB
     Route: 042
     Dates: start: 20150310
  26. PANTOPRAZOL [PANTOPRAZOLE] [Concomitant]
     Active Substance: PANTOPRAZOLE
     Indication: PRODUCT USED FOR UNKNOWN INDICATION
     Route: 065
  27. DEKRISTOL [Concomitant]
     Active Substance: CHOLECALCIFEROL
     Indication: PRODUCT USED FOR UNKNOWN INDICATION
     Route: 065
  28. FLUDARABINE [Suspect]
     Active Substance: FLUDARABINE PHOSPHATE
     Dosage: 25 MG/M2
     Route: 042
     Dates: start: 20141119
  29. SOLU?DECORTIN H [Concomitant]
     Indication: PRODUCT USED FOR UNKNOWN INDICATION
     Route: 065
     Dates: start: 201411
  30. TOPIRAMAT [Suspect]
     Active Substance: TOPIRAMATE
     Indication: EPILEPSY
     Route: 065
     Dates: start: 2018, end: 20200221
  31. CYCLOPHOSPHAMID [Suspect]
     Active Substance: CYCLOPHOSPHAMIDE
     Route: 042
     Dates: start: 20141119
  32. CYCLOPHOSPHAMID [Suspect]
     Active Substance: CYCLOPHOSPHAMIDE
     Dosage: 250 MG/M2 SUBSEQUENT DOSE ADMINISTERED ON 11/MAR/2015, 12/MAR/2015
     Route: 042
     Dates: start: 20150310
  33. KEPPRA [Suspect]
     Active Substance: LEVETIRACETAM
     Indication: EPILEPSY
     Route: 065
     Dates: start: 20160727, end: 20170710
  34. GAZYVARO [Suspect]
     Active Substance: OBINUTUZUMAB
     Indication: CHRONIC LYMPHOCYTIC LEUKAEMIA
     Route: 042
     Dates: start: 20150113
  35. GAZYVARO [Suspect]
     Active Substance: OBINUTUZUMAB
     Route: 042
     Dates: start: 201502
  36. FLUDARABINE [Suspect]
     Active Substance: FLUDARABINE PHOSPHATE
     Indication: CHRONIC LYMPHOCYTIC LEUKAEMIA
     Route: 065
     Dates: start: 20141118, end: 20150407
  37. FLUDARABINE [Suspect]
     Active Substance: FLUDARABINE PHOSPHATE
     Dosage: 25 MG/M2
     Route: 042
     Dates: start: 20141118
  38. FLUDARABINE [Suspect]
     Active Substance: FLUDARABINE PHOSPHATE
     Route: 042
     Dates: start: 20150114
  39. KIOVIG [Suspect]
     Active Substance: HUMAN IMMUNOGLOBULIN G
     Indication: IMMUNOGLOBULINS DECREASED
     Route: 065
  40. CALCIUMFOLINAT [Concomitant]
     Active Substance: LEUCOVORIN CALCIUM
     Indication: PRODUCT USED FOR UNKNOWN INDICATION
     Route: 065
  41. CIPROFLOXACIN. [Concomitant]
     Active Substance: CIPROFLOXACIN
     Indication: PRODUCT USED FOR UNKNOWN INDICATION
     Route: 065

REACTIONS (29)
  - Urge incontinence [Not Recovered/Not Resolved]
  - Pain [Unknown]
  - Decreased appetite [Unknown]
  - Ear infection [Unknown]
  - Eczema [Unknown]
  - Organic brain syndrome [Unknown]
  - Benign prostatic hyperplasia [Unknown]
  - Initial insomnia [Unknown]
  - Osteoarthritis [Not Recovered/Not Resolved]
  - Affective disorder [Unknown]
  - Back pain [Unknown]
  - Eructation [Unknown]
  - Bladder hypertrophy [Unknown]
  - Dry mouth [Unknown]
  - Parosmia [Unknown]
  - Oedema peripheral [Unknown]
  - Pollakiuria [Not Recovered/Not Resolved]
  - Eye irritation [Unknown]
  - Skin cancer [Unknown]
  - Taste disorder [Unknown]
  - Muscle twitching [Unknown]
  - Peroneal nerve palsy [Unknown]
  - Pruritus [Unknown]
  - Febrile infection [Recovered/Resolved]
  - Dehydration [Recovered/Resolved]
  - Adjustment disorder [Unknown]
  - Vitamin D deficiency [Unknown]
  - Depression [Unknown]
  - Rhinorrhoea [Unknown]

NARRATIVE: CASE EVENT DATE: 2018
